FAERS Safety Report 7557285-2 (Version None)
Quarter: 2011Q2

REPORT INFORMATION
  Report Type: 
  Country: None (occurrence: None)
  Receive Date: 20110620
  Receipt Date: 20080617
  Transmission Date: 20111010
  Serious: Yes (Death)
  Sender: FDA-Public Use
  Company Number: PHHY2008DE37520

PATIENT
  Sex: Female

DRUGS (7)
  1. SANDOSTATIN [Suspect]
     Dosage: 1800 UG, Q72H
     Route: 058
  2. CYKLOKAPRON [Concomitant]
  3. SANDOSTATIN LAR [Suspect]
     Indication: NEOPLASM MALIGNANT
     Dosage: UNK
     Route: 030
     Dates: start: 20080101
  4. LEVOFLOXACIN [Concomitant]
  5. TPN ELECTROLYTES IN PLASTIC CONTAINER [Concomitant]
  6. FUROSEMIDE [Concomitant]
  7. NOVALGIN                                /SCH/ [Concomitant]

REACTIONS (4)
  - CONSTIPATION [None]
  - VOMITING [None]
  - NAUSEA [None]
  - TERMINAL STATE [None]
